FAERS Safety Report 4803662-X (Version None)
Quarter: 2005Q4

REPORT INFORMATION
  Report Type: 
  Country: None (occurrence: None)
  Receive Date: 20051014
  Receipt Date: 20051005
  Transmission Date: 20060501
  Serious: Yes (Death, Hospitalization, Other)
  Sender: FDA-Public Use
  Company Number: 2005-10-0152

PATIENT
  Age: 52 Year
  Sex: Female

DRUGS (9)
  1. RINDERON ORAL, NOT OTHERWISE SPECIFIED ^LIKE CELESTONE ORAL SOLUTION^ [Suspect]
     Indication: CANCER PAIN
     Dosage: 2-4 MG* ORAL
     Route: 048
  2. FENTANYL [Suspect]
     Indication: CANCER PAIN
  3. FLUNITRAZEPAM [Suspect]
     Indication: SLEEP DISORDER
     Dosage: 4 MG DR
  4. FLURBIPROFEN [Concomitant]
  5. HALOPERIDOL [Concomitant]
  6. MORPHINE [Concomitant]
  7. KETAMINE HCL [Concomitant]
  8. LIDOCAINE [Concomitant]
  9. CHLORPROMAZINE HCL [Concomitant]

REACTIONS (9)
  - DELIRIUM [None]
  - DELUSION [None]
  - DISTURBANCE IN ATTENTION [None]
  - GENERAL PHYSICAL HEALTH DETERIORATION [None]
  - HALLUCINATION [None]
  - MENTAL STATUS CHANGES [None]
  - NAUSEA [None]
  - PAIN [None]
  - RESTLESSNESS [None]
